FAERS Safety Report 11322635 (Version 2)
Quarter: 2015Q3

REPORT INFORMATION
  Report Type: Spontaneous
  Country: SK (occurrence: SK)
  Receive Date: 20150730
  Receipt Date: 20150819
  Transmission Date: 20151125
  Serious: Yes (Hospitalization, Other)
  Sender: FDA-Public Use
  Company Number: SK-AMGEN-SVKSP2015075062

PATIENT
  Age: 55 Year
  Sex: Female
  Weight: 63 kg

DRUGS (8)
  1. PROLIA [Suspect]
     Active Substance: DENOSUMAB
     Indication: OSTEOPOROSIS POSTMENOPAUSAL
     Dosage: 60 MG, Q6MO
     Route: 058
     Dates: start: 20111118, end: 20150717
  2. ALFAKALCIDOL SANDOZ [Concomitant]
     Dosage: 1 MUG, QD
     Route: 048
  3. NAPSYN [Concomitant]
     Dosage: 250 MG, BID
     Route: 048
  4. MILURIT [Concomitant]
     Active Substance: ALLOPURINOL
     Dosage: 150 MG, QD (300 MG, HALF TAB DAILY)
     Route: 048
  5. ALPHA D3 [Concomitant]
  6. NOLPAZA [Concomitant]
     Active Substance: PANTOPRAZOLE SODIUM
     Dosage: UNK UNK, QD
  7. PLAQUENIL [Concomitant]
     Active Substance: HYDROXYCHLOROQUINE SULFATE
     Dosage: 200 MG, QHS ( 1TAB DAILY IN THE EVENING)
     Route: 048
  8. ATORVASTATIN [Concomitant]
     Active Substance: ATORVASTATIN
     Route: 048

REACTIONS (22)
  - Angina unstable [Unknown]
  - Injection site swelling [Recovered/Resolved]
  - Limb discomfort [Unknown]
  - Upper limb fracture [Unknown]
  - Skin disorder [Unknown]
  - Peripheral swelling [Unknown]
  - Lower limb fracture [Unknown]
  - Hip fracture [Unknown]
  - Myocardial ischaemia [Unknown]
  - Arthropathy [Unknown]
  - Musculoskeletal pain [Unknown]
  - Fracture pain [Unknown]
  - Joint swelling [Unknown]
  - Osteoporotic fracture [Unknown]
  - Fungal infection [Unknown]
  - Anaemia [Unknown]
  - Musculoskeletal stiffness [Unknown]
  - Finger deformity [Unknown]
  - Mobility decreased [Unknown]
  - Injection site haematoma [Recovered/Resolved]
  - Wrist fracture [Unknown]
  - Cardiac pacemaker insertion [Unknown]

NARRATIVE: CASE EVENT DATE: 20150318
